FAERS Safety Report 9527825 (Version 1)
Quarter: 2013Q1

REPORT INFORMATION
  Report Type: Spontaneous
  Country: US (occurrence: None)
  Receive Date: 20130313
  Receipt Date: 20130313
  Transmission Date: 20140127
  Serious: Yes (Life-Threatening)
  Sender: FDA-Public Use
  Company Number: 1000028663

PATIENT
  Age: 64 Year
  Sex: Female

DRUGS (1)
  1. SAVELLA [Suspect]
     Indication: PAIN
     Dosage: 100MG (50 MG, 2 IN 1 D)

REACTIONS (2)
  - Suicidal ideation [None]
  - Off label use [None]
